FAERS Safety Report 10528306 (Version 3)
Quarter: 2015Q1

REPORT INFORMATION
  Report Type: Spontaneous
  Country: NO (occurrence: NO)
  Receive Date: 20141020
  Receipt Date: 20150118
  Transmission Date: 20150720
  Serious: Yes (Hospitalization)
  Sender: FDA-Public Use
  Company Number: NO-ASTRAZENECA-2014SE76356

PATIENT
  Age: 63 Year
  Sex: Male

DRUGS (5)
  1. FENTANYL. [Suspect]
     Active Substance: FENTANYL
     Indication: ANALGESIC THERAPY
     Dosage: 12-14 MICROGRAMS/HOUR
     Route: 008
     Dates: start: 20140116, end: 20140118
  2. PARACET [Concomitant]
     Active Substance: ACETAMINOPHEN
     Route: 048
  3. BUPIVACAINE [Suspect]
     Active Substance: BUPIVACAINE
     Indication: ANALGESIC THERAPY
     Dosage: 6-7 MG/HOUR
     Route: 008
     Dates: start: 20140116, end: 20140118
  4. EPINEPHRINE. [Suspect]
     Active Substance: EPINEPHRINE
     Indication: ANALGESIC THERAPY
     Dosage: 12-14 MICROGRAMS/HOUR
     Route: 008
     Dates: start: 20140116, end: 20140118
  5. KLEXANE [Concomitant]
     Active Substance: ENOXAPARIN
     Route: 058

REACTIONS (2)
  - Hypovolaemia [Unknown]
  - Sinus arrest [Recovering/Resolving]

NARRATIVE: CASE EVENT DATE: 20140117
